FAERS Safety Report 6035085-2 (Version None)
Quarter: 2009Q1

REPORT INFORMATION
  Report Type: 
  Country: None (occurrence: None)
  Receive Date: 20090112
  Receipt Date: 20090107
  Transmission Date: 20090719
  Serious: Yes (Hospitalization)
  Sender: FDA-Public Use
  Company Number: BR-ROXANE LABORATORIES, INC.-2009-RO-00028RO

PATIENT
  Age: 49 Year
  Sex: Female

DRUGS (6)
  1. PREDNISONE TAB [Suspect]
     Indication: IMMUNOSUPPRESSANT DRUG THERAPY
     Dosage: 10MG
     Dates: start: 19880101
  2. AZATHIOPRINE [Suspect]
     Indication: IMMUNOSUPPRESSANT DRUG THERAPY
     Dosage: 150MG
     Dates: start: 19880101, end: 20060101
  3. MYCOPHENOLATE SODIUM [Suspect]
     Indication: IMMUNOSUPPRESSANT DRUG THERAPY
     Dosage: 1080MG
     Dates: start: 20060101
  4. ORAL ANTIBIOTICS [Concomitant]
     Indication: HISTOPLASMOSIS DISSEMINATED
  5. CEFTRIAXONE [Concomitant]
     Indication: HISTOPLASMOSIS DISSEMINATED
     Route: 042
  6. ITRACONAZOLE [Concomitant]
     Indication: HISTOPLASMOSIS DISSEMINATED
     Dosage: 200MG

REACTIONS (1)
  - HISTOPLASMOSIS DISSEMINATED [None]
